FAERS Safety Report 6658737-X (Version None)
Quarter: 2010Q1

REPORT INFORMATION
  Report Type: 
  Country: None (occurrence: None)
  Receive Date: 20100330
  Receipt Date: 20100322
  Transmission Date: 20100710
  Serious: Yes (Hospitalization)
  Sender: FDA-Public Use
  Company Number: PHHY2010US18463

PATIENT
  Sex: Female

DRUGS (1)
  1. GLEEVEC [Suspect]
     Dosage: 300 MG, QD
     Route: 048

REACTIONS (2)
  - ABDOMINAL PAIN [None]
  - GASTRIC ANTRAL VASCULAR ECTASIA [None]
